FAERS Safety Report 8364555-7 (Version None)
Quarter: 2012Q2

REPORT INFORMATION
  Report Type: 
  Country: None (occurrence: None)
  Receive Date: 20120516
  Receipt Date: 20120513
  Transmission Date: 20120825
  Serious: Yes (Life-Threatening, Hospitalization)
  Sender: FDA-Public Use
  Company Number: US-BAYER-2012-047482

PATIENT
  Sex: Female

DRUGS (1)
  1. NAPROXEN SODIUM [Suspect]
     Dosage: 440 MG, ONCE
     Route: 048
     Dates: start: 20111223

REACTIONS (4)
  - HYPOTENSION [None]
  - RENAL FAILURE [None]
  - VOMITING [None]
  - GENERALISED ERYTHEMA [None]
